FAERS Safety Report 13848270 (Version 1)
Quarter: 2017Q3

REPORT INFORMATION
  Report Type: Spontaneous
  Country: US (occurrence: US)
  Receive Date: 20170808
  Receipt Date: 20170808
  Transmission Date: 20171127
  Serious: Yes (Disabling)
  Sender: FDA-Public Use
  Company Number: None

PATIENT
  Age: 23 Year
  Sex: Female
  Weight: 47.67 kg

DRUGS (1)
  1. PARAGARD T 380A [Suspect]
     Active Substance: COPPER
     Dates: start: 20160110, end: 20160214

REACTIONS (6)
  - Anxiety [None]
  - Panic attack [None]
  - Insomnia [None]
  - Depression [None]
  - Hot flush [None]
  - Thinking abnormal [None]

NARRATIVE: CASE EVENT DATE: 20160204
